FAERS Safety Report 20305148 (Version 2)
Quarter: 2022Q1

REPORT INFORMATION
  Report Type: Report from Study
  Country: PL (occurrence: None)
  Receive Date: 20220106
  Receipt Date: 20220112
  Transmission Date: 20220423
  Serious: Yes (Death)
  Sender: FDA-Public Use
  Company Number: PL-ROCHE-2971700

PATIENT
  Age: 80 Year
  Sex: Male
  Weight: 50 kg

DRUGS (7)
  1. ATEZOLIZUMAB [Suspect]
     Active Substance: ATEZOLIZUMAB
     Indication: Non-small cell lung cancer
     Dosage: MOST RECENT DOSE ON 21/SEP/2021
     Route: 041
     Dates: start: 20210921
  2. BISOPROLOL FUMARATE [Concomitant]
     Active Substance: BISOPROLOL FUMARATE
     Indication: Hypertension
  3. DILTIAZEM HYDROCHLORIDE [Concomitant]
     Active Substance: DILTIAZEM HYDROCHLORIDE
     Indication: Hypertension
  4. ROSUVASTATIN [Concomitant]
     Active Substance: ROSUVASTATIN
     Indication: Arteriosclerosis
  5. KARBICOMBI [Concomitant]
     Indication: Hypertension
  6. ACARD [Concomitant]
     Indication: Myocardial infarction
     Route: 048
     Dates: start: 20191222
  7. METOPROLOL [Concomitant]
     Active Substance: METOPROLOL
     Indication: Myocardial infarction
     Route: 048
     Dates: start: 20200109

REACTIONS (1)
  - Death [Fatal]

NARRATIVE: CASE EVENT DATE: 20211124
